FAERS Safety Report 17236853 (Version 1)
Quarter: 2020Q1

REPORT INFORMATION
  Report Type: Spontaneous
  Country: US (occurrence: US)
  Receive Date: 20200106
  Receipt Date: 20200106
  Transmission Date: 20200409
  Serious: No
  Sender: FDA-Public Use
  Company Number: US-BAYER-2020-001615

PATIENT
  Age: 59 Year
  Sex: Male

DRUGS (6)
  1. ALEVE [Suspect]
     Active Substance: NAPROXEN SODIUM
     Indication: PAIN
     Route: 048
     Dates: start: 201901, end: 20200103
  2. SOLGAR MULTI NUTRIENT [Concomitant]
  3. ZYFLAMEND WHOLE BODY [Concomitant]
  4. VITAMIN D [VITAMIN D NOS] [Concomitant]
     Active Substance: VITAMIN D NOS
  5. COSAMIN ASU [Concomitant]
  6. COQ 10 [Concomitant]
     Active Substance: UBIDECARENONE

REACTIONS (3)
  - Feeling abnormal [Recovered/Resolved]
  - Anxiety [Recovered/Resolved]
  - Drug ineffective [Unknown]

NARRATIVE: CASE EVENT DATE: 20191225
